FAERS Safety Report 5847914-3 (Version None)
Quarter: 2008Q3

REPORT INFORMATION
  Report Type: 
  Country: None (occurrence: None)
  Receive Date: 20080818
  Receipt Date: 20080807
  Transmission Date: 20090109
  Serious: Yes (Death)
  Sender: FDA-Public Use
  Company Number: US-KINGPHARMUSA00001-K200800641

PATIENT

DRUGS (5)
  1. AVINZA [Suspect]
     Dosage: 240 MG, QD
     Route: 048
     Dates: start: 20080523, end: 20080528
  2. CITALOPRAM HYDROBROMIDE [Suspect]
  3. DIAZEPAM [Suspect]
  4. GLUCOTROL [Concomitant]
     Indication: DIABETES MELLITUS
     Dosage: 10 MG, QD
     Route: 048
     Dates: start: 20020101
  5. METFORMIN HCL [Concomitant]
     Indication: DIABETES MELLITUS
     Dosage: 500 MG, BID
     Route: 048
     Dates: start: 20000101

REACTIONS (2)
  - ACCIDENTAL DEATH [None]
  - DRUG INTERACTION [None]
